FAERS Safety Report 7093263-8 (Version None)
Quarter: 2010Q4

REPORT INFORMATION
  Report Type: 
  Country: None (occurrence: None)
  Receive Date: 20101110
  Receipt Date: 20101027
  Transmission Date: 20110411
  Serious: Yes (Other)
  Sender: FDA-Public Use
  Company Number: ZA-SANOFI-AVENTIS-2010SA062611

PATIENT
  Age: 72 Year
  Sex: Female

DRUGS (4)
  1. KETEK [Suspect]
     Indication: SINUSITIS
     Route: 065
  2. KETEK [Suspect]
     Route: 065
  3. WARFARIN SODIUM [Concomitant]
     Route: 065
  4. ACTIFED [Concomitant]
     Indication: SINUSITIS
     Route: 065

REACTIONS (5)
  - BLINDNESS [None]
  - CONDITION AGGRAVATED [None]
  - DIPLOPIA [None]
  - TEMPORAL ARTERITIS [None]
  - VISION BLURRED [None]
